FAERS Safety Report 18123666 (Version 1)
Quarter: 2020Q3

REPORT INFORMATION
  Report Type: Spontaneous
  Country: US (occurrence: US)
  Receive Date: 20200807
  Receipt Date: 20200807
  Transmission Date: 20201103
  Serious: No
  Sender: FDA-Public Use
  Company Number: US-TECHDOW-2019TECHDOW000003

PATIENT
  Age: 77 Year
  Sex: Male
  Weight: 147 kg

DRUGS (1)
  1. HEPARIN SODIUM INJECTION, USP (PARABENS WITH NACL) [Suspect]
     Active Substance: HEPARIN SODIUM
     Indication: COAGULATION TIME SHORTENED
     Dosage: 27000UNIT
     Route: 040
     Dates: start: 20190814

REACTIONS (2)
  - Therapy change [Unknown]
  - Product measured potency issue [Unknown]

NARRATIVE: CASE EVENT DATE: 20190814
